FAERS Safety Report 4768516-6 (Version None)
Quarter: 2005Q3

REPORT INFORMATION
  Report Type: 
  Country: None (occurrence: None)
  Receive Date: 20050914
  Receipt Date: 20050901
  Transmission Date: 20060218
  Serious: Yes (Disabling, Other)
  Sender: FDA-Public Use
  Company Number: AU-AMGEN-US148790

PATIENT
  Sex: Female

DRUGS (10)
  1. NEUPOGEN [Suspect]
     Indication: CHEMOTHERAPY
  2. CYTARABINE [Suspect]
  3. FLUDARABINE PHOSPHATE [Suspect]
  4. VORICONAZOLE [Concomitant]
  5. ACYCLOVIR [Concomitant]
  6. PANTOPRAZOLE [Concomitant]
  7. METOCLOPRAMIDE HYDROCHLORIDE [Concomitant]
  8. ONDANSETRON HYDROCHLORIDE [Concomitant]
  9. DEXAMETHASONE [Concomitant]
  10. BACTRIM [Concomitant]

REACTIONS (4)
  - BLINDNESS [None]
  - IRIDOCYCLITIS [None]
  - OPTIC DISC DISORDER [None]
  - VISION BLURRED [None]
